FAERS Safety Report 17076583 (Version 1)
Quarter: 2019Q4

REPORT INFORMATION
  Report Type: Spontaneous
  Country: US (occurrence: US)
  Receive Date: 20191126
  Receipt Date: 20191126
  Transmission Date: 20200122
  Serious: Yes (Other)
  Sender: FDA-Public Use
  Company Number: US-SA-2019SA324829

PATIENT
  Age: 71 Year
  Sex: Male

DRUGS (2)
  1. FLOMAX [Suspect]
     Active Substance: TAMSULOSIN HYDROCHLORIDE
     Indication: PROSTATIC DISORDER
     Dosage: 0.4 MG
  2. FLOMAX [Suspect]
     Active Substance: TAMSULOSIN HYDROCHLORIDE
     Dosage: 0.8 MG, QD

REACTIONS (6)
  - Dizziness [Unknown]
  - Drug ineffective [Unknown]
  - Urinary retention [Unknown]
  - Nocturia [Unknown]
  - Extra dose administered [Unknown]
  - Product dose omission [Unknown]
